FAERS Safety Report 4354145-5 (Version None)
Quarter: 2004Q2

REPORT INFORMATION
  Report Type: 
  Country: None (occurrence: None)
  Receive Date: 20040503
  Receipt Date: 20040420
  Transmission Date: 20050107
  Serious: No
  Sender: FDA-Public Use
  Company Number: 2004-115406-NL

PATIENT
  Age: 47 Year
  Sex: 0

DRUGS (2)
  1. MIRTAZAPINE [Suspect]
     Dosage: 30 MG
  2. BETAHISTINE HYDROCHLORIDE [Suspect]
     Dosage: 24 MG

REACTIONS (4)
  - ARRHYTHMIA [None]
  - DISTURBANCE IN ATTENTION [None]
  - MANIA [None]
  - VERTIGO [None]
